FAERS Safety Report 5787799-7 (Version None)
Quarter: 2008Q2

REPORT INFORMATION
  Report Type: 
  Country: None (occurrence: None)
  Receive Date: 20080625
  Receipt Date: 20080616
  Transmission Date: 20081010
  Serious: Yes (Other)
  Sender: FDA-Public Use
  Company Number: PHHY2008DE11079

PATIENT
  Sex: Female

DRUGS (2)
  1. RASILEZ [Suspect]
     Indication: HYPERTENSION
     Dosage: 75 MG/DAY
     Dates: start: 20080610, end: 20080612
  2. RASILEZ [Suspect]
     Dosage: 150 MG/DAY
     Dates: start: 20080613

REACTIONS (3)
  - BLOOD PRESSURE INADEQUATELY CONTROLLED [None]
  - EXTRASYSTOLES [None]
  - NAUSEA [None]
